FAERS Safety Report 17230136 (Version 4)
Quarter: 2020Q4

REPORT INFORMATION
  Report Type: Spontaneous
  Country: VN (occurrence: VN)
  Receive Date: 20200103
  Receipt Date: 20201110
  Transmission Date: 20210113
  Serious: Yes (Hospitalization)
  Sender: FDA-Public Use
  Company Number: VN-ROCHE-2481901

PATIENT
  Sex: Male

DRUGS (9)
  1. ABEVMY [Suspect]
     Active Substance: BEVACIZUMAB
     Dosage: COMBINED WITH PEMETREXED AND PEMBROLIZUMAB
     Route: 042
  2. PEMETREXED. [Concomitant]
     Active Substance: PEMETREXED
     Dosage: COMBINED WITH BEVACIZUMAB AND TECENTRIQ
  3. CARBOPLATIN. [Concomitant]
     Active Substance: CARBOPLATIN
  4. ABEVMY [Suspect]
     Active Substance: BEVACIZUMAB
     Dosage: COMBINED WITH PEMETREXED AND TECENTRIQ
     Route: 042
     Dates: start: 20191119
  5. PEMBROLIZUMAB. [Concomitant]
     Active Substance: PEMBROLIZUMAB
     Indication: NON-SMALL CELL LUNG CANCER METASTATIC
  6. PEMETREXED. [Concomitant]
     Active Substance: PEMETREXED
     Dosage: COMBINED WITH BEVACIZUMAB AND PEMBROLIZUMAB
  7. TECENTRIQ [Suspect]
     Active Substance: ATEZOLIZUMAB
     Indication: NON-SMALL CELL LUNG CANCER METASTATIC
     Dosage: COMBINED WITH BEVACIZUMAB AND PEMETREXED
     Route: 041
     Dates: start: 20191118
  8. ABEVMY [Suspect]
     Active Substance: BEVACIZUMAB
     Indication: NON-SMALL CELL LUNG CANCER METASTATIC
     Dosage: COMBINED WITH PEMETREXED
     Route: 042
  9. PEMETREXED. [Concomitant]
     Active Substance: PEMETREXED
     Indication: NON-SMALL CELL LUNG CANCER METASTATIC
     Dosage: COMBINED WITH BEVACIZUMAB

REACTIONS (5)
  - Pyrexia [Recovered/Resolved]
  - Off label use [Unknown]
  - Product use issue [Unknown]
  - Product use issue [Unknown]
  - Off label use [Unknown]

NARRATIVE: CASE EVENT DATE: 20191118
